FAERS Safety Report 17874803 (Version 1)
Quarter: 2020Q2

REPORT INFORMATION
  Report Type: Spontaneous
  Country: US (occurrence: US)
  Receive Date: 20200609
  Receipt Date: 20200609
  Transmission Date: 20200714
  Serious: No
  Sender: FDA-Public Use
  Company Number: US-ENDO PHARMACEUTICALS INC-2019-107642

PATIENT
  Age: 7 Year
  Sex: Female
  Weight: 33.7 kg

DRUGS (2)
  1. SUPPRELIN LA [Suspect]
     Active Substance: HISTRELIN ACETATE
     Dosage: 50 MG, ONCE A YEAR; LEFT ARM
     Route: 058
     Dates: start: 20190517, end: 20190614
  2. SUPPRELIN LA [Suspect]
     Active Substance: HISTRELIN ACETATE
     Indication: PRECOCIOUS PUBERTY
     Dosage: 50 MG, ONCE A YEAR; LEFT ARM
     Route: 058
     Dates: start: 20180223

REACTIONS (2)
  - Incorrect product administration duration [Recovered/Resolved]
  - Ulnar nerve injury [Unknown]

NARRATIVE: CASE EVENT DATE: 20180223
